FAERS Safety Report 18441181 (Version 1)
Quarter: 2020Q4

REPORT INFORMATION
  Report Type: Spontaneous
  Country: US (occurrence: US)
  Receive Date: 20201029
  Receipt Date: 20201029
  Transmission Date: 20210114
  Serious: Yes (Other)
  Sender: FDA-Public Use
  Company Number: None

PATIENT
  Age: 62 Year
  Sex: Female
  Weight: 98.1 kg

DRUGS (22)
  1. DICLOFENAC 1% GEL APPLY 2G THREE TIMES DAILY [Concomitant]
     Dates: start: 20201008
  2. FOLIC ACID 1MG DAILY [Concomitant]
     Dates: start: 20180330, end: 20200812
  3. LAMOTRIGINE. [Suspect]
     Active Substance: LAMOTRIGINE
     Indication: BIPOLAR DISORDER
     Route: 048
     Dates: start: 20200212, end: 20200226
  4. ATORVASTATIN 20MG DAILY [Concomitant]
     Dates: start: 20150320
  5. DULOXETINE 30MG DAILY [Concomitant]
     Dates: start: 20140711, end: 20161103
  6. GABAPENTIN 100MG TWICE DAILY [Concomitant]
     Dates: start: 20160907, end: 20170420
  7. CITALOPRAM 20MG DAILY [Concomitant]
     Dates: start: 20161103, end: 20191001
  8. DIVALPROEX 125MG UNKNOWN FREQUENCY [Concomitant]
     Dates: start: 20060828, end: 20090108
  9. VENLAFAXINE ER 37.5MG DAILY [Concomitant]
     Dates: start: 20061018, end: 20140711
  10. METFORMIN 1000MG TWICE DAILY [Concomitant]
     Dates: start: 20180502
  11. ASPIRIN 81MG DAILY [Concomitant]
     Active Substance: ASPIRIN
     Dates: start: 20111128, end: 20180502
  12. ZETIA 10MG DIALY [Concomitant]
     Dates: start: 20111128, end: 20150224
  13. PANTOPRAZOLE 40MG DAILY [Concomitant]
     Dates: start: 20200812
  14. CAPSAICIN 1% CREAM APPLY 2-3 TIMES DAILY [Concomitant]
     Dates: start: 20200824, end: 20201008
  15. ESCITALOPRAM 10MG DAILY [Concomitant]
     Dates: start: 20060828, end: 20061018
  16. LISINOPRIL 20MG DAILY [Concomitant]
     Dates: start: 20190910
  17. PREMARIN 0.625MG VAGINAL CREAM 0.5 APPLICATOR DAILY [Concomitant]
     Dates: start: 20201008
  18. OXCARBAZEPINE 300MG 3 TABLETS DAILY [Concomitant]
     Dates: start: 20200312
  19. ACETAMINOPHEN 500MG- 2 TABLETS EVERY 4 TO 6 HOURS AS NEEDED [Concomitant]
     Dates: start: 20200812, end: 20200824
  20. CITALOPRAM 10MG DAILY [Concomitant]
     Dates: start: 20160907, end: 20161103
  21. METHOTREXATE 2.5MG VARIABLE DOSING [Concomitant]
     Dates: start: 20180330, end: 20190910
  22. NAPROXEN 500MG TWICE DAILY [Concomitant]
     Dates: start: 20071115, end: 20170420

REACTIONS (3)
  - Hypersensitivity [None]
  - Rash pruritic [None]
  - Rash [None]

NARRATIVE: CASE EVENT DATE: 20200312
